FAERS Safety Report 5068858-3 (Version None)
Quarter: 2006Q3

REPORT INFORMATION
  Report Type: 
  Country: None (occurrence: None)
  Receive Date: 20060802
  Receipt Date: 20060505
  Transmission Date: 20061208
  Serious: No
  Sender: FDA-Public Use
  Company Number: US-BRISTOL-MYERS SQUIBB COMPANY-13370374

PATIENT
  Sex: Male

DRUGS (4)
  1. COUMADIN [Suspect]
  2. LEXAPRO [Suspect]
  3. CYTOMEL [Concomitant]
  4. STRATTERA [Concomitant]

REACTIONS (6)
  - ABNORMAL DREAMS [None]
  - DIZZINESS [None]
  - FALL [None]
  - HAEMORRHAGE [None]
  - HALLUCINATION, VISUAL [None]
  - SKIN LACERATION [None]
